FAERS Safety Report 4921165-9 (Version None)
Quarter: 2006Q1

REPORT INFORMATION
  Report Type: 
  Country: None (occurrence: None)
  Receive Date: 20060217
  Receipt Date: 20060206
  Transmission Date: 20060701
  Serious: Yes (Death, Other)
  Sender: FDA-Public Use
  Company Number: 2006BH002537

PATIENT
  Age: 79 Year
  Sex: Male

DRUGS (5)
  1. HEPARIN SODIUM WITH SODIUM CHLORIDE (HEPARIN SODIUM) [Suspect]
     Dosage: 1000 IU;IV
     Route: 042
  2. HEPARIN SODIUM WITH SODIUM CHLORIDE (HEPARIN SODIUM) [Suspect]
     Dosage: 1000 IU; IVBOL
     Route: 040
  3. HEPARIN SODIUM WITH SODIUM CHLORIDE (HEPARIN SODIUM) [Suspect]
     Dosage: 500 IU; CONTINUOUS; IV
     Route: 042
  4. HEPARIN SODIUM WITH SODIUM CHLORIDE (HEPARIN SODIUM) [Suspect]
     Dosage: 20000 IU;IV
     Route: 042
  5. HEPARIN SODIUM WITH SODIUM CHLORIDE (HEPARIN SODIUM) [Suspect]
     Dosage: 11000 IU;IV
     Route: 042

REACTIONS (7)
  - DEEP VEIN THROMBOSIS [None]
  - HAEMODIALYSIS [None]
  - HEPARIN-INDUCED THROMBOCYTOPENIA [None]
  - MULTI-ORGAN FAILURE [None]
  - PLATELET COUNT DECREASED [None]
  - POST PROCEDURAL COMPLICATION [None]
  - RENAL FAILURE ACUTE [None]
